FAERS Safety Report 10026720 (Version 1)
Quarter: 2014Q1

REPORT INFORMATION
  Report Type: Spontaneous
  Country: CN (occurrence: CN)
  Receive Date: 20140321
  Receipt Date: 20140321
  Transmission Date: 20141002
  Serious: Yes (Hospitalization, Other)
  Sender: FDA-Public Use
  Company Number: CN-BRISTOL-MYERS SQUIBB COMPANY-20427183

PATIENT
  Age: 42 Year
  Sex: Male

DRUGS (2)
  1. BYETTA [Suspect]
     Indication: TYPE 2 DIABETES MELLITUS
     Dosage: PREVIOUS DOSE:10OCT12; LOT#A966580 EXP:AUG14
     Dates: start: 20140224
  2. GLUCOPHAGE TABS [Suspect]
     Indication: DIABETES MELLITUS
     Dosage: 1DF: 4TABS

REACTIONS (9)
  - Dizziness [Unknown]
  - Hypoaesthesia [Unknown]
  - Blood glucose increased [Unknown]
  - Asthenia [Unknown]
  - Nausea [Unknown]
  - Vomiting [Unknown]
  - Vertigo [Unknown]
  - Sexual dysfunction [Unknown]
  - Product quality issue [Unknown]
